FAERS Safety Report 17523767 (Version 1)
Quarter: 2020Q1

REPORT INFORMATION
  Report Type: Spontaneous
  Country: US (occurrence: US)
  Receive Date: 20200311
  Receipt Date: 20200311
  Transmission Date: 20200409
  Serious: No
  Sender: FDA-Public Use
  Company Number: US-009507513-2003USA003906

PATIENT
  Age: 24 Year
  Sex: Female

DRUGS (3)
  1. VARIVAX [Suspect]
     Active Substance: VARICELLA-ZOSTER VIRUS STRAIN OKA/MERCK LIVE ANTIGEN
     Dosage: 1 DOSAGE FORM
     Dates: start: 20200210
  2. VARIVAX [Suspect]
     Active Substance: VARICELLA-ZOSTER VIRUS STRAIN OKA/MERCK LIVE ANTIGEN
     Indication: PROPHYLAXIS
     Dosage: 1 DOSAGE FORM
     Dates: start: 19980225
  3. STERILE DILUENT (WATER) [Suspect]
     Active Substance: WATER
     Dosage: UNK

REACTIONS (1)
  - Seroconversion test negative [Unknown]

NARRATIVE: CASE EVENT DATE: 20190114
